FAERS Safety Report 8360380-1 (Version None)
Quarter: 2012Q2

REPORT INFORMATION
  Report Type: 
  Country: None (occurrence: None)
  Receive Date: 20120515
  Receipt Date: 20120510
  Transmission Date: 20120825
  Serious: Yes (Life-Threatening, Hospitalization, Other)
  Sender: FDA-Public Use
  Company Number: US-SANOFI-AVENTIS-2012SA033608

PATIENT
  Age: 70 Year
  Sex: Male
  Weight: 76.9 kg

DRUGS (4)
  1. CISPLATIN [Suspect]
     Indication: NON-SMALL CELL LUNG CANCER
     Route: 042
     Dates: start: 20090728
  2. DOCETAXEL [Suspect]
     Indication: NON-SMALL CELL LUNG CANCER
     Dosage: DOSE:75 MILLIGRAM(S)/MILLILITRE
     Route: 042
     Dates: start: 20090728
  3. BEVACIZUMAB [Suspect]
     Indication: NON-SMALL CELL LUNG CANCER
     Dosage: OVER 30-90 MIN ON DAY 1
     Route: 042
     Dates: start: 20090728
  4. DEXAMETHASONE [Concomitant]

REACTIONS (4)
  - ENDOCARDITIS [None]
  - HYPERGLYCAEMIA [None]
  - HYPOGLYCAEMIA [None]
  - URINARY TRACT INFECTION [None]
